FAERS Safety Report 19472643 (Version 1)
Quarter: 2021Q2

REPORT INFORMATION
  Report Type: Spontaneous
  Country: CZ (occurrence: CZ)
  Receive Date: 20210629
  Receipt Date: 20210629
  Transmission Date: 20210717
  Serious: Yes (Other)
  Sender: FDA-Public Use
  Company Number: CZ-MYLANLABS-2021M1037397

PATIENT
  Age: 60 Year
  Sex: Female

DRUGS (4)
  1. GLIMEPIRIDE. [Suspect]
     Active Substance: GLIMEPIRIDE
     Dosage: 1 MILLIGRAM, QD (DISCONTINUED GLIMEPIRIDE AND SITAGLIPTIN 50MG MONOTHERAPY, QD REMAINED)
  2. SITAGLIPTIN [Concomitant]
     Active Substance: SITAGLIPTIN
     Indication: TYPE 2 DIABETES MELLITUS
     Dosage: 50 MILLIGRAM, QD
  3. GLIMEPIRIDE. [Suspect]
     Active Substance: GLIMEPIRIDE
     Dosage: 4 MILLIGRAM, QD (4 MG ONCE DAILY TO 2 MG ONCE DAILY.  )
  4. GLIMEPIRIDE. [Suspect]
     Active Substance: GLIMEPIRIDE
     Indication: TYPE 2 DIABETES MELLITUS
     Dosage: 2 MILLIGRAM, QD (HALVED GLIMEPIRIDE TO 1 MG ONCE A DAY)

REACTIONS (2)
  - Diabetic metabolic decompensation [Recovered/Resolved]
  - Weight increased [Recovered/Resolved]
